FAERS Safety Report 13210786 (Version 2)
Quarter: 2017Q1

REPORT INFORMATION
  Report Type: Spontaneous
  Country: ES (occurrence: ES)
  Receive Date: 20170209
  Receipt Date: 20170210
  Transmission Date: 20170428
  Serious: Yes (Death, Hospitalization, Other)
  Sender: FDA-Public Use
  Company Number: ES-009507513-1504ESP016120

PATIENT
  Age: 40 Year
  Sex: Male

DRUGS (3)
  1. TEICOPLANIN [Concomitant]
     Active Substance: TEICOPLANIN
     Indication: DEVICE RELATED INFECTION
     Dosage: UNK UNK, UNK
     Route: 065
     Dates: start: 20110318, end: 20110408
  2. CUBICIN [Suspect]
     Active Substance: DAPTOMYCIN
     Indication: DEVICE RELATED INFECTION
     Dosage: 525 MG, Q24H
     Route: 042
     Dates: start: 20110414, end: 20110418
  3. LINEZOLID. [Concomitant]
     Active Substance: LINEZOLID
     Indication: DEVICE RELATED INFECTION
     Dosage: UNK UNK, UNK
     Route: 065
     Dates: start: 20110408, end: 20110414

REACTIONS (11)
  - Neutropenia [Not Recovered/Not Resolved]
  - Sepsis [Not Recovered/Not Resolved]
  - Incorrect dose administered [Unknown]
  - Haemorrhagic disorder [Fatal]
  - Thrombocytopenia [Not Recovered/Not Resolved]
  - Hypothermia [Not Recovered/Not Resolved]
  - Hepatitis [Not Recovered/Not Resolved]
  - Hepatotoxicity [Not Recovered/Not Resolved]
  - Renal impairment [Not Recovered/Not Resolved]
  - Pyrexia [Unknown]
  - Multiple organ dysfunction syndrome [Not Recovered/Not Resolved]

NARRATIVE: CASE EVENT DATE: 201104
